FAERS Safety Report 18784328 (Version 2)
Quarter: 2021Q1

REPORT INFORMATION
  Report Type: Spontaneous
  Country: JP (occurrence: JP)
  Receive Date: 20210126
  Receipt Date: 20210220
  Transmission Date: 20210419
  Serious: Yes (Other)
  Sender: FDA-Public Use
  Company Number: JP-ROCHE-2754129

PATIENT
  Age: 36 Year
  Sex: Female

DRUGS (2)
  1. TECENTRIQ [Suspect]
     Active Substance: ATEZOLIZUMAB
     Indication: HEPATOCELLULAR CARCINOMA
     Route: 041
     Dates: end: 20210107
  2. AVASTIN [Suspect]
     Active Substance: BEVACIZUMAB
     Indication: HEPATOCELLULAR CARCINOMA
     Route: 041
     Dates: end: 20210107

REACTIONS (2)
  - C-reactive protein increased [Recovered/Resolved]
  - Pyrexia [Recovered/Resolved]

NARRATIVE: CASE EVENT DATE: 20210107
